FAERS Safety Report 10581543 (Version 2)
Quarter: 2014Q4

REPORT INFORMATION
  Report Type: Spontaneous
  Country: GB (occurrence: GB)
  Receive Date: 20141113
  Receipt Date: 20141211
  Transmission Date: 20150529
  Serious: Yes (Disabling, Other)
  Sender: FDA-Public Use
  Company Number: GB-TEVA-520189ISR

PATIENT
  Age: 55 Year
  Sex: Male

DRUGS (2)
  1. CESTOR [Concomitant]
  2. SIMVASTATIN. [Suspect]
     Active Substance: SIMVASTATIN
     Indication: BLOOD CHOLESTEROL INCREASED
     Dosage: DOSE 40, UNIT UNSPECIFIED
     Route: 048

REACTIONS (15)
  - Tenderness [Unknown]
  - Myalgia [Unknown]
  - Self esteem decreased [Unknown]
  - Quality of life decreased [Unknown]
  - Fatigue [Unknown]
  - Activities of daily living impaired [Unknown]
  - Asthenia [Unknown]
  - Impaired work ability [Unknown]
  - Balance disorder [Unknown]
  - Frustration [Unknown]
  - Social problem [Unknown]
  - Drug intolerance [Unknown]
  - Muscular weakness [Unknown]
  - Feeling abnormal [Unknown]
  - Psychiatric symptom [Unknown]
